FAERS Safety Report 5378361-9 (Version None)
Quarter: 2007Q3

REPORT INFORMATION
  Report Type: 
  Country: None (occurrence: None)
  Receive Date: 20070702
  Receipt Date: 20070702
  Transmission Date: 20080115
  Serious: Yes (Hospitalization)
  Sender: FDA-Public Use
  Company Number: None

PATIENT
  Sex: Female
  Weight: 68.18 kg

DRUGS (1)
  1. AROMASIN [Suspect]
     Dosage: 25 MG

REACTIONS (5)
  - CONFUSIONAL STATE [None]
  - DIARRHOEA [None]
  - HALLUCINATION [None]
  - HYPOKALAEMIA [None]
  - OEDEMA PERIPHERAL [None]
